FAERS Safety Report 4866662-X (Version None)
Quarter: 2005Q4

REPORT INFORMATION
  Report Type: 
  Country: None (occurrence: None)
  Receive Date: 20051221
  Receipt Date: 20051205
  Transmission Date: 20060501
  Serious: Yes (Other)
  Sender: FDA-Public Use
  Company Number: 220466

PATIENT
  Sex: Female

DRUGS (2)
  1. AVASTIN [Suspect]
     Indication: RENAL CANCER METASTATIC
     Dosage: INTRAVENOUS
     Route: 042
  2. TARCEVA [Suspect]
     Indication: RENAL CANCER METASTATIC
     Dosage: ORAL
     Route: 048

REACTIONS (3)
  - ANAEMIA [None]
  - BACTERIURIA [None]
  - URINARY TRACT INFECTION [None]
